FAERS Safety Report 8104575-0 (Version None)
Quarter: 2012Q1

REPORT INFORMATION
  Report Type: 
  Country: None (occurrence: None)
  Receive Date: 20120201
  Receipt Date: 20120130
  Transmission Date: 20120608
  Serious: Yes (Other)
  Sender: FDA-Public Use
  Company Number: US-MERCK-1201USA04095

PATIENT
  Age: 83 Year
  Sex: Male

DRUGS (1)
  1. JANUVIA [Suspect]
     Indication: DIABETES MELLITUS
     Route: 048
     Dates: start: 20110101

REACTIONS (3)
  - HEPATIC NEOPLASM MALIGNANT [None]
  - FALL [None]
  - BLOOD CREATININE INCREASED [None]
